FAERS Safety Report 22129899 (Version 5)
Quarter: 2023Q2

REPORT INFORMATION
  Report Type: Report from Study
  Country: BR (occurrence: None)
  Receive Date: 20230323
  Receipt Date: 20230606
  Transmission Date: 20230722
  Serious: Yes (Hospitalization)
  Sender: FDA-Public Use
  Company Number: BR-ROCHE-3313357

PATIENT
  Age: 83 Year
  Sex: Male
  Weight: 55 kg

DRUGS (17)
  1. MOSUNETUZUMAB [Suspect]
     Active Substance: MOSUNETUZUMAB
     Indication: B-cell lymphoma
     Dosage: ON 07/MAR/2023, MOST RECENT DOSE OF MOSUNETUZUMAB (45 MG) WAS ADMINISTERED PRIOR TO AE/SAE
     Route: 058
     Dates: start: 20221215
  2. POLATUZUMAB VEDOTIN [Suspect]
     Active Substance: POLATUZUMAB VEDOTIN
     Indication: B-cell lymphoma
     Dosage: ON 07/MAR/2023, MOST RECENT DOSE OF POLATUZUMAB (101.25 MG) WAS ADMINISTERED PRIOR TO AE/SAE
     Route: 042
     Dates: start: 20221215
  3. PANTOPRAZOLE [Concomitant]
     Active Substance: PANTOPRAZOLE
     Indication: Gastritis
     Route: 048
     Dates: start: 202206
  4. DOMPERIDONE [Concomitant]
     Active Substance: DOMPERIDONE
     Indication: Gastritis
     Route: 048
     Dates: start: 202206
  5. SERTRALINE [Concomitant]
     Active Substance: SERTRALINE HYDROCHLORIDE
     Indication: Depression
     Route: 048
     Dates: start: 202210, end: 20230306
  6. SERTRALINE [Concomitant]
     Active Substance: SERTRALINE HYDROCHLORIDE
     Dates: start: 20230307
  7. LORAZEPAM [Concomitant]
     Active Substance: LORAZEPAM
     Indication: Insomnia
     Route: 048
     Dates: start: 2020
  8. LORATADINE [Concomitant]
     Active Substance: LORATADINE
     Indication: Rhinitis
     Route: 048
     Dates: start: 2020
  9. ALBUTEROL [Concomitant]
     Active Substance: ALBUTEROL
     Indication: Asthma
     Dosage: 1 OTHER
     Route: 055
     Dates: start: 2020
  10. ENTECAVIR [Concomitant]
     Active Substance: ENTECAVIR
     Indication: Hepatitis B reactivation
     Route: 048
     Dates: start: 20221130
  11. BACTRIM [Concomitant]
     Active Substance: SULFAMETHOXAZOLE\TRIMETHOPRIM
     Indication: Infection prophylaxis
     Dates: start: 20221215
  12. ACYCLOVIR [Concomitant]
     Active Substance: ACYCLOVIR
     Indication: Antiviral prophylaxis
     Dates: start: 20221215
  13. DIPYRONE [Concomitant]
     Active Substance: DIPYRONE
     Indication: Headache
     Dates: start: 20230305
  14. DIPYRONE [Concomitant]
     Active Substance: DIPYRONE
     Indication: Arthralgia
  15. VASOPRESSIN [Concomitant]
     Active Substance: VASOPRESSIN
     Indication: Hypotension
  16. AZITHROMYCIN [Concomitant]
     Active Substance: AZITHROMYCIN
     Indication: Tonsillitis
     Dates: start: 20230313, end: 20230317
  17. AMOXICILLIN [Concomitant]
     Active Substance: AMOXICILLIN
     Indication: Tonsillitis
     Dates: start: 20230313, end: 20230323

REACTIONS (1)
  - COVID-19 [Recovered/Resolved]

NARRATIVE: CASE EVENT DATE: 20230315
